FAERS Safety Report 24251440 (Version 1)
Quarter: 2024Q3

REPORT INFORMATION
  Report Type: Report from Study
  Country: US (occurrence: US)
  Receive Date: 20240826
  Receipt Date: 20240826
  Transmission Date: 20241016
  Serious: Yes (Hospitalization)
  Sender: ABBVIE
  Company Number: US-ABBVIE-5892560

PATIENT
  Sex: Female

DRUGS (3)
  1. VENCLEXTA [Suspect]
     Active Substance: VENETOCLAX
     Indication: Acute myeloid leukaemia
     Dosage: DAYS 1-7 OF A 28 DAY CYCLE
     Route: 048
     Dates: start: 20240729
  2. VANFLYTA [Concomitant]
     Active Substance: QUIZARTINIB DIHYDROCHLORIDE
     Indication: Acute myeloid leukaemia
     Dates: start: 20240729
  3. XOSPATA [Concomitant]
     Active Substance: GILTERITINIB
     Indication: Acute myeloid leukaemia
     Dosage: LAST ADMIN DATE 2024
     Dates: start: 20240331

REACTIONS (3)
  - Platelet transfusion [Unknown]
  - Tooth infection [Unknown]
  - Oral infection [Unknown]

NARRATIVE: CASE EVENT DATE: 20240101
